FAERS Safety Report 6065262-6 (Version None)
Quarter: 2009Q1

REPORT INFORMATION
  Report Type: 
  Country: None (occurrence: None)
  Receive Date: 20090204
  Receipt Date: 20090119
  Transmission Date: 20090719
  Serious: Yes (Death)
  Sender: FDA-Public Use
  Company Number: FR-ROCHE-611476

PATIENT
  Sex: Female

DRUGS (10)
  1. ROCEPHIN [Suspect]
     Dosage: STRENGTH AND FORMULATION AND DOSAGE REGIMEN: UNKNOWN
     Route: 030
     Dates: start: 20071225
  2. FUROSEMIDE [Suspect]
     Dosage: DOSGAE REGIMEN REPORTED AS: 1 DOSE PER
     Route: 048
  3. CARDENSIEL [Suspect]
     Dosage: DOSAGE REGIMEN REPORTED AS:1 DOSE PER.
     Route: 048
  4. IKOREL [Suspect]
     Dosage: DOSAGE REGIMEN REPORTED AS: 0.5 DOSE BI
     Route: 048
  5. OMEPRAZOLE [Suspect]
     Indication: DRUG USE FOR UNKNOWN INDICATION
     Dosage: DOSAGE REGIMEN REPORTED AS: 20 MG , I DO
     Route: 048
  6. KARDEGIC [Suspect]
     Dosage: DOSAGE REGIMEN REPORTED AS: 1 DOSE PER
     Route: 048
  7. TRIATEC [Suspect]
     Dosage: DOSAGE REGIMEN REPORTED AS: 1 DOSE PER.
     Route: 065
  8. CRESTOR [Suspect]
     Indication: DRUG USE FOR UNKNOWN INDICATION
     Route: 065
  9. LEVOTHYROX [Suspect]
     Indication: DRUG USE FOR UNKNOWN INDICATION
     Route: 065
  10. MEDROL [Suspect]
     Indication: DRUG USE FOR UNKNOWN INDICATION
     Route: 065

REACTIONS (6)
  - DERMATITIS BULLOUS [None]
  - DYSPNOEA [None]
  - GENERALISED ERYTHEMA [None]
  - MULTI-ORGAN FAILURE [None]
  - OEDEMA [None]
  - TOXIC EPIDERMAL NECROLYSIS [None]
